FAERS Safety Report 6376631-9 (Version None)
Quarter: 2009Q3

REPORT INFORMATION
  Report Type: 
  Country: None (occurrence: None)
  Receive Date: 20090925
  Receipt Date: 20090921
  Transmission Date: 20100115
  Serious: Yes (Death, Life-Threatening, Hospitalization)
  Sender: FDA-Public Use
  Company Number: FR-ABBOTT-09P-056-0579555-00

PATIENT
  Sex: Female
  Weight: 81 kg

DRUGS (5)
  1. HUMIRA [Suspect]
     Indication: RHEUMATOID ARTHRITIS
     Route: 058
     Dates: start: 20040329, end: 20090410
  2. PROPRANOLOL [Concomitant]
     Indication: HYPERTENSION
     Dates: start: 20040501, end: 20090410
  3. LEVOTHYROXINE SODIUM [Concomitant]
     Indication: HYPOTHYROIDISM
     Dates: start: 20050817, end: 20090410
  4. ARAVA [Concomitant]
     Indication: RHEUMATOID ARTHRITIS
     Dates: start: 20070223, end: 20090410
  5. COMMERCIAL HUMIRA [Concomitant]
     Indication: RHEUMATOID ARTHRITIS
     Route: 058
     Dates: start: 20031215

REACTIONS (5)
  - ENCEPHALITIS [None]
  - ENDOCARDITIS STAPHYLOCOCCAL [None]
  - GLOMERULONEPHRITIS [None]
  - HAEMODYNAMIC INSTABILITY [None]
  - SEPSIS [None]
